FAERS Safety Report 8742408 (Version 3)
Quarter: 2012Q4

REPORT INFORMATION
  Report Type: 
  Country: CA (occurrence: CA)
  Receive Date: 20120824
  Receipt Date: 20121107
  Transmission Date: 20130627
  Serious: Yes (Hospitalization, Other)
  Sender: FDA-Public Use
  Company Number: CA-PFIZER INC-2012203329

PATIENT
  Age: 29 Year
  Sex: Female
  Weight: 70.8 kg

DRUGS (9)
  1. CHAMPIX [Suspect]
     Indication: SMOKING CESSATION THERAPY
     Dosage: 0.5 mg, 2x/day
     Route: 048
     Dates: start: 20110512, end: 20110808
  2. CHAMPIX [Suspect]
     Dosage: 1 mg, 2x/day
     Route: 048
     Dates: start: 20110809, end: 20111109
  3. CHAMPIX [Suspect]
     Dosage: 0.5 mg, 2x/day
     Dates: start: 20120906, end: 20120920
  4. VENTOLIN [Concomitant]
     Indication: ASTHMA
     Dosage: UNK, as needed
     Route: 055
     Dates: start: 20110415
  5. PULMICORT TURBUHALER [Concomitant]
     Dosage: 200 ug, 2x/day
     Dates: start: 20110415
  6. YASMIN [Concomitant]
     Indication: BIRTH CONTROL PILL
     Dosage: 1 tablet daily
     Route: 048
     Dates: start: 20110913
  7. YASMIN [Concomitant]
     Indication: MENORRHAGIA
  8. ALESSE [Concomitant]
     Indication: MENORRHAGIA
     Dosage: 1 tablet daily
     Route: 048
     Dates: start: 20110720, end: 201110
  9. ALESSE [Concomitant]
     Indication: BIRTH CONTROL PILL

REACTIONS (6)
  - Overdose [Recovered/Resolved]
  - Depression [Recovered/Resolved with Sequelae]
  - Impulsive behaviour [Recovered/Resolved with Sequelae]
  - Substance abuse [Recovered/Resolved]
  - Sinus tachycardia [Unknown]
  - Drug ineffective [Recovered/Resolved]
